FAERS Safety Report 5858476-9 (Version None)
Quarter: 2008Q3

REPORT INFORMATION
  Report Type: 
  Country: None (occurrence: None)
  Receive Date: 20080826
  Receipt Date: 20080819
  Transmission Date: 20090109
  Serious: Yes (Other)
  Sender: FDA-Public Use
  Company Number: US-JNJFOC-20080306708

PATIENT
  Sex: Male
  Weight: 158.76 kg

DRUGS (2)
  1. INVEGA [Suspect]
     Indication: PSYCHOTIC DISORDER
     Route: 048
  2. SEROQUEL [Concomitant]
     Indication: PSYCHOTIC DISORDER

REACTIONS (1)
  - WEIGHT INCREASED [None]
